FAERS Safety Report 7760628-8 (Version None)
Quarter: 2011Q3

REPORT INFORMATION
  Report Type: 
  Country: None (occurrence: None)
  Receive Date: 20110919
  Receipt Date: 20110913
  Transmission Date: 20111222
  Serious: Yes (Hospitalization)
  Sender: FDA-Public Use
  Company Number: JP-PFIZER INC-2011201028

PATIENT
  Age: 48 Year
  Sex: Female
  Weight: 53.9 kg

DRUGS (2)
  1. ZITHROMAX [Concomitant]
     Dosage: 500 MG, DAILY
     Route: 048
     Dates: start: 20110312, end: 20110314
  2. ZITHROMAX [Suspect]
     Indication: PNEUMONIA MYCOPLASMAL
     Dosage: 2 G, SINGLE
     Route: 048
     Dates: start: 20110225, end: 20110225

REACTIONS (4)
  - PRURITUS [None]
  - RASH [None]
  - POLYMYOSITIS [None]
  - PYREXIA [None]
